FAERS Safety Report 7740240-7 (Version None)
Quarter: 2011Q3

REPORT INFORMATION
  Report Type: 
  Country: None (occurrence: None)
  Receive Date: 20110909
  Receipt Date: 20110905
  Transmission Date: 20111222
  Serious: Yes (Other)
  Sender: FDA-Public Use
  Company Number: JP-PFIZER INC-2011185152

PATIENT
  Age: 41 Year
  Sex: Female

DRUGS (2)
  1. LYRICA [Suspect]
     Indication: NERVE INJURY
  2. LYRICA [Suspect]
     Indication: PAIN
     Dosage: 25 MG TWICE DAILY OR 75 MG ONCE DAILY
     Route: 048
     Dates: start: 20110711, end: 20110806

REACTIONS (2)
  - VISION BLURRED [None]
  - PHOTOPHOBIA [None]
